FAERS Safety Report 25532449 (Version 1)
Quarter: 2025Q3

REPORT INFORMATION
  Report Type: Spontaneous
  Country: US (occurrence: US)
  Receive Date: 20250709
  Receipt Date: 20250709
  Transmission Date: 20251021
  Serious: No
  Sender: MADRIGAL PHARMACEUTICALS
  Company Number: US-MADRIGAL PHARMACEUTICALS, INC-2025REZ3831

PATIENT

DRUGS (17)
  1. REZDIFFRA [Suspect]
     Active Substance: RESMETIROM
     Indication: Metabolic dysfunction-associated steatohepatitis
     Route: 048
     Dates: start: 202503
  2. ENBREL [Suspect]
     Active Substance: ETANERCEPT
     Indication: Psoriatic arthropathy
     Dates: start: 2024
  3. PROVIGIL [Concomitant]
     Active Substance: MODAFINIL
     Indication: Narcolepsy
  4. SUNOSI [Concomitant]
     Active Substance: SOLRIAMFETOL
     Indication: Narcolepsy
  5. DILTIAZEM [Concomitant]
     Active Substance: DILTIAZEM
     Indication: Prinzmetal angina
  6. DILTIAZEM [Concomitant]
     Active Substance: DILTIAZEM
     Indication: Postural orthostatic tachycardia syndrome
  7. HYDROXYCHLOROQUINE [Concomitant]
     Active Substance: HYDROXYCHLOROQUINE
     Indication: Psoriatic arthropathy
  8. CLONAZEPAM [Concomitant]
     Active Substance: CLONAZEPAM
     Indication: Anxiety
  9. VILAZODONE [Concomitant]
     Active Substance: VILAZODONE
     Indication: Depression
  10. DICLOFENAC [Concomitant]
     Active Substance: DICLOFENAC
     Indication: Arthralgia
  11. DOXEPIN [Concomitant]
     Active Substance: DOXEPIN
     Indication: Insomnia
  12. PROTONIX [Concomitant]
     Active Substance: PANTOPRAZOLE SODIUM
     Indication: Gastrooesophageal reflux disease
  13. LYRICA [Concomitant]
     Active Substance: PREGABALIN
     Indication: Neuropathy peripheral
  14. LYRICA [Concomitant]
     Active Substance: PREGABALIN
     Indication: Meralgia paraesthetica
  15. ZOFRAN [Concomitant]
     Active Substance: ONDANSETRON HYDROCHLORIDE
     Indication: Nausea
  16. METAXALONE [Concomitant]
     Active Substance: METAXALONE
     Indication: Muscle relaxant therapy
  17. METAXALONE [Concomitant]
     Active Substance: METAXALONE
     Indication: Pain

REACTIONS (1)
  - Alopecia [Unknown]
